FAERS Safety Report 10293323 (Version 1)
Quarter: 2014Q3

REPORT INFORMATION
  Report Type: Spontaneous
  Country: US (occurrence: US)
  Receive Date: 20140710
  Receipt Date: 20140710
  Transmission Date: 20150326
  Serious: Yes (Other)
  Sender: FDA-Public Use
  Company Number: US-GLAXOSMITHKLINE-A1080385A

PATIENT
  Age: 28 Year
  Sex: Male

DRUGS (4)
  1. LAMICTAL [Suspect]
     Active Substance: LAMOTRIGINE
     Indication: CONVULSION
     Dosage: 300MG TWICE PER DAY
     Route: 048
     Dates: start: 201203
  2. KEPPRA [Concomitant]
     Active Substance: LEVETIRACETAM
  3. DILANTIN [Suspect]
     Active Substance: PHENYTOIN
     Indication: BRAIN NEOPLASM
     Dosage: 300MG TWICE PER DAY
     Route: 048
     Dates: start: 201310, end: 20140608
  4. CLONAZEPAM. [Concomitant]
     Active Substance: CLONAZEPAM

REACTIONS (2)
  - Convulsion [Not Recovered/Not Resolved]
  - Aura [Unknown]
